FAERS Safety Report 9605050 (Version 3)
Quarter: 2013Q4

REPORT INFORMATION
  Report Type: Spontaneous
  Country: JP (occurrence: JP)
  Receive Date: 20131008
  Receipt Date: 20131101
  Transmission Date: 20140711
  Serious: Yes (Hospitalization)
  Sender: FDA-Public Use
  Company Number: JP-SA-2013SA099999

PATIENT
  Age: 0 Day
  Sex: 0
  Weight: 2.9 kg

DRUGS (1)
  1. MYSLEE [Suspect]
     Indication: FOETAL EXPOSURE DURING PREGNANCY
     Dosage: FREQ: 4-5 TIMES PER WEEK
     Route: 064
     Dates: start: 20130821, end: 20130923

REACTIONS (1)
  - Respiratory disorder neonatal [Recovered/Resolved]
